FAERS Safety Report 11304082 (Version 1)
Quarter: 2015Q3

REPORT INFORMATION
  Report Type: Spontaneous
  Country: US (occurrence: US)
  Receive Date: 20150723
  Receipt Date: 20150723
  Transmission Date: 20151125
  Serious: No
  Sender: FDA-Public Use
  Company Number: US-JNJFOC-20150609913

PATIENT
  Age: 82 Year
  Sex: Female
  Weight: 72.58 kg

DRUGS (1)
  1. PEPCID COMPLETE [Suspect]
     Active Substance: CALCIUM CARBONATE\FAMOTIDINE\MAGNESIUM HYDROXIDE
     Indication: GASTROOESOPHAGEAL REFLUX DISEASE
     Dosage: EVERY NIGHT
     Route: 048
     Dates: end: 20150615

REACTIONS (1)
  - Incorrect drug administration duration [Unknown]
